FAERS Safety Report 8464524-2 (Version None)
Quarter: 2012Q2

REPORT INFORMATION
  Report Type: 
  Country: None (occurrence: None)
  Receive Date: 20120323
  Receipt Date: 20111018
  Transmission Date: 20120825
  Serious: Yes (Other)
  Sender: FDA-Public Use
  Company Number: 163-21880-11102014

PATIENT
  Age: 91 Year
  Sex: Female
  Weight: 61.2356 kg

DRUGS (13)
  1. CALCIUM CARBONATE [Concomitant]
  2. LEXAPRO [Concomitant]
  3. LEVOTHYROXINE SODIUM [Concomitant]
  4. NAMENDA [Concomitant]
  5. SENNA (SENNA) [Concomitant]
  6. ARICEPT [Concomitant]
  7. COZAAR [Concomitant]
  8. FOLIC ACID [Concomitant]
  9. PLAVIX [Concomitant]
  10. HYDROCHLOROTHIAZIDE [Concomitant]
  11. SPECTRAVITE (MULTIVITAMINS) [Concomitant]
  12. REVLIMID [Suspect]
     Indication: MYELODYSPLASTIC SYNDROME
     Dosage: 10 MG, 1 IN 1 D, PO
     Route: 048
     Dates: start: 20110817
  13. VITAMIN B12 [Concomitant]

REACTIONS (1)
  - FULL BLOOD COUNT DECREASED [None]
